FAERS Safety Report 16091209 (Version 3)
Quarter: 2019Q2

REPORT INFORMATION
  Report Type: Spontaneous
  Country: US (occurrence: US)
  Receive Date: 20190319
  Receipt Date: 20190509
  Transmission Date: 20190711
  Serious: Yes (Other)
  Sender: FDA-Public Use
  Company Number: US-AKORN PHARMACEUTICALS-2019AKN00469

PATIENT
  Age: 29 Year
  Sex: Female

DRUGS (2)
  1. MYORISAN [Suspect]
     Active Substance: ISOTRETINOIN
     Dosage: 30 MG, 2X/DAY
     Dates: start: 20181102, end: 2019
  2. IUD NOS [Concomitant]
     Active Substance: COPPER OR LEVONORGESTREL
     Dosage: UNK

REACTIONS (4)
  - Exposure during pregnancy [Recovered/Resolved]
  - Pain [Unknown]
  - Vaginal haemorrhage [Unknown]
  - Abortion induced [Recovered/Resolved]

NARRATIVE: CASE EVENT DATE: 201902
